FAERS Safety Report 8354438-0 (Version None)
Quarter: 2012Q2

REPORT INFORMATION
  Report Type: 
  Country: None (occurrence: None)
  Receive Date: 20120511
  Receipt Date: 20120502
  Transmission Date: 20120825
  Serious: Yes (Other)
  Sender: FDA-Public Use
  Company Number: US-ASTRAZENECA-2012SE25204

PATIENT
  Age: 68 Year
  Sex: Female

DRUGS (23)
  1. ELAVIL [Concomitant]
     Dates: start: 20040101
  2. AMLODIPINE BESYLATE [Concomitant]
  3. LISINOPRIL [Suspect]
     Route: 048
     Dates: start: 20050101
  4. VITAMIN D [Concomitant]
     Dates: start: 20080101
  5. STOOL SOFTENER [Concomitant]
     Dosage: TWO TIMES DAILY AND OCCASIONALLY WITH STIMULANT
     Dates: start: 20000101
  6. OXYCODONE HCL AND ACETAMINOPHEN [Concomitant]
     Dosage: 10/325 MG  AS REQURED Q 6 HRS
  7. NEURONTIN [Concomitant]
     Dates: start: 20090101
  8. FLAX OIL [Concomitant]
     Dates: start: 20040101
  9. SINGULAIR [Concomitant]
  10. OXYCODONE HCL EXTENDED-RELEASE [Concomitant]
     Dates: start: 20000101
  11. OXYCODONE HCL AND ACETAMINOPHEN [Concomitant]
     Dosage: 10/325 MG AT NIGHT
     Dates: start: 20000101
  12. HYDROCHLOROTHIAZIDE [Concomitant]
     Dates: start: 19980101
  13. FISH OIL [Concomitant]
     Dates: start: 19980101
  14. OMEPRAZOLE [Suspect]
     Route: 048
     Dates: start: 20090101
  15. MELOXICAM [Concomitant]
     Dates: start: 20100101
  16. ADVAIR DISKUS 100/50 [Concomitant]
     Dosage: 500/50 ONE PUFF TWO TIMES A DAY
     Dates: start: 20100101
  17. VENTOLIN [Concomitant]
     Dosage: TWO PUFFS TWO TIMES A DAY AND PRN
     Dates: start: 20100101
  18. ACTOS [Concomitant]
     Dates: start: 19980101
  19. ASPIRIN [Concomitant]
     Dates: start: 20050101
  20. NEURONTIN [Concomitant]
     Dates: start: 20040101
  21. SUPER B COMPLEX [Concomitant]
  22. FLUTICASONE FUROATE [Concomitant]
     Dates: start: 20110101
  23. BACTROBAN [Concomitant]
     Dosage: NASAL WASH FOUR TIMES A DAY AND AS REQUIERED
     Route: 045
     Dates: start: 20090101

REACTIONS (8)
  - OSTEOARTHRITIS [None]
  - BREAST CANCER IN SITU [None]
  - ASTHMA [None]
  - BACK PAIN [None]
  - DRUG INEFFECTIVE [None]
  - MUSCULOSKELETAL PAIN [None]
  - PAIN IN EXTREMITY [None]
  - PERIARTHRITIS [None]
